FAERS Safety Report 20467642 (Version 3)
Quarter: 2023Q4

REPORT INFORMATION
  Report Type: Spontaneous
  Country: US (occurrence: US)
  Receive Date: 20220214
  Receipt Date: 20231122
  Transmission Date: 20240109
  Serious: No
  Sender: FDA-Public Use
  Company Number: US-GILEAD-2022-0569212

PATIENT
  Age: 69 Year
  Sex: Male
  Weight: 78.005 kg

DRUGS (99)
  1. TRUVADA [Suspect]
     Active Substance: EMTRICITABINE\TENOFOVIR DISOPROXIL FUMARATE
     Indication: HIV infection
     Dosage: UNK
     Route: 048
     Dates: start: 2007
  2. TRUVADA [Suspect]
     Active Substance: EMTRICITABINE\TENOFOVIR DISOPROXIL FUMARATE
     Dosage: UNK
     Route: 048
     Dates: start: 2005, end: 201607
  3. TRUVADA [Suspect]
     Active Substance: EMTRICITABINE\TENOFOVIR DISOPROXIL FUMARATE
     Dosage: UNK
     Route: 048
     Dates: start: 2006, end: 201607
  4. COMPLERA [Suspect]
     Active Substance: EMTRICITABINE\RILPIVIRINE HYDROCHLORIDE\TENOFOVIR DISOPROXIL FUMARATE
     Indication: HIV infection
     Dosage: UNK
     Route: 048
     Dates: start: 201305, end: 201310
  5. VIREAD [Suspect]
     Active Substance: TENOFOVIR DISOPROXIL FUMARATE
     Indication: HIV infection
     Dosage: UNK
     Route: 048
     Dates: start: 200205, end: 2005
  6. VIREAD [Suspect]
     Active Substance: TENOFOVIR DISOPROXIL FUMARATE
     Dosage: UNK
     Route: 048
     Dates: start: 200205, end: 2006
  7. BIKTARVY [Concomitant]
     Active Substance: BICTEGRAVIR SODIUM\EMTRICITABINE\TENOFOVIR ALAFENAMIDE FUMARATE
  8. DESCOVY [Concomitant]
     Active Substance: EMTRICITABINE\TENOFOVIR ALAFENAMIDE FUMARATE
  9. ODEFSEY [Concomitant]
     Active Substance: EMTRICITABINE\RILPIVIRINE HYDROCHLORIDE\TENOFOVIR ALAFENAMIDE FUMARATE
  10. EPIVIR [Concomitant]
     Active Substance: LAMIVUDINE
  11. REYATAZ [Concomitant]
     Active Substance: ATAZANAVIR SULFATE
  12. TIVICAY [Concomitant]
     Active Substance: DOLUTEGRAVIR SODIUM
  13. VIRACEPT [Concomitant]
     Active Substance: NELFINAVIR MESYLATE
  14. VIRAMUNE [Concomitant]
     Active Substance: NEVIRAPINE
  15. ZERIT [Concomitant]
     Active Substance: STAVUDINE
  16. ATORVASTATIN [Concomitant]
     Active Substance: ATORVASTATIN
  17. GABAPENTIN [Concomitant]
     Active Substance: GABAPENTIN
  18. VICTOZA [Concomitant]
     Active Substance: LIRAGLUTIDE
  19. METFORMIN [Concomitant]
     Active Substance: METFORMIN HYDROCHLORIDE
  20. NOVOLOG [Concomitant]
     Active Substance: INSULIN ASPART
  21. TERBUTALINE [Concomitant]
     Active Substance: TERBUTALINE
  22. HYDROCHLOROTHIAZIDE [Concomitant]
     Active Substance: HYDROCHLOROTHIAZIDE
  23. CETIRIZINE [Concomitant]
     Active Substance: CETIRIZINE HYDROCHLORIDE
  24. LISINOPRIL [Concomitant]
     Active Substance: LISINOPRIL
  25. DULOXETINE [Concomitant]
     Active Substance: DULOXETINE
  26. CLOPIDOGREL [Concomitant]
     Active Substance: CLOPIDOGREL BISULFATE
  27. METOPROLOL [Concomitant]
     Active Substance: METOPROLOL
  28. AMMONIUM LACTATE [Concomitant]
     Active Substance: AMMONIUM LACTATE
  29. HYDROXYZINE [Concomitant]
     Active Substance: HYDROXYZINE HYDROCHLORIDE
  30. CEPHALEXIN [Concomitant]
     Active Substance: CEPHALEXIN
  31. MUPIROCIN [Concomitant]
     Active Substance: MUPIROCIN
  32. WARFARIN [Concomitant]
     Active Substance: WARFARIN
  33. ENOXAPARIN [Concomitant]
     Active Substance: ENOXAPARIN
  34. AMIODARONE [Concomitant]
     Active Substance: AMIODARONE
  35. JARDIANCE [Concomitant]
     Active Substance: EMPAGLIFLOZIN
  36. TRULICITY [Concomitant]
     Active Substance: DULAGLUTIDE
  37. PREGABALIN [Concomitant]
     Active Substance: PREGABALIN
  38. TRIAMCINOLONE [Concomitant]
     Active Substance: TRIAMCINOLONE
  39. CLOTRIMAZOLE [Concomitant]
     Active Substance: CLOTRIMAZOLE
  40. MELATONIN [Concomitant]
     Active Substance: MELATONIN
  41. LIDOCAINE [Concomitant]
     Active Substance: LIDOCAINE
  42. TRAMADOL [Concomitant]
     Active Substance: TRAMADOL\TRAMADOL HYDROCHLORIDE
  43. OXYCODONE [Concomitant]
     Active Substance: OXYCODONE
  44. ASPIRIN [Concomitant]
     Active Substance: ASPIRIN
  45. VIRTUSSIN AC [Concomitant]
     Active Substance: CODEINE PHOSPHATE\GUAIFENESIN
  46. CILOSTAZOL [Concomitant]
     Active Substance: CILOSTAZOL
  47. NAPROXEN [Concomitant]
     Active Substance: NAPROXEN
  48. LORATADINE [Concomitant]
     Active Substance: LORATADINE
  49. CLOBETASOL [Concomitant]
     Active Substance: CLOBETASOL
  50. CYCLOBENZAPRINE [Concomitant]
     Active Substance: CYCLOBENZAPRINE
  51. IBUPROFEN [Concomitant]
     Active Substance: IBUPROFEN
  52. KETOCONAZOLE [Concomitant]
     Active Substance: KETOCONAZOLE
  53. AMLODIPINE [Concomitant]
     Active Substance: AMLODIPINE BESYLATE
  54. LEVEMIR [Concomitant]
     Active Substance: INSULIN DETEMIR
  55. OSELTAMIVIR [Concomitant]
     Active Substance: OSELTAMIVIR
  56. CEFADROXIL [Concomitant]
     Active Substance: CEFADROXIL
  57. CARVEDILOL [Concomitant]
     Active Substance: CARVEDILOL
  58. CEFUROXIME [Concomitant]
     Active Substance: CEFUROXIME
  59. DOXYCYCLINE [Concomitant]
     Active Substance: DOXYCYCLINE
  60. BANOPHEN [Concomitant]
     Active Substance: DIPHENHYDRAMINE HYDROCHLORIDE
  61. CHLORHEXIDINE [Concomitant]
     Active Substance: CHLORHEXIDINE\CHLORHEXIDINE GLUCONATE
  62. JANUMET [Concomitant]
     Active Substance: METFORMIN HYDROCHLORIDE\SITAGLIPTIN PHOSPHATE
  63. AMOXICILLIN [Concomitant]
     Active Substance: AMOXICILLIN
  64. HUMALOG [Concomitant]
     Active Substance: INSULIN LISPRO
  65. TIZANIDINE [Concomitant]
     Active Substance: TIZANIDINE
  66. DILTIAZEM [Concomitant]
     Active Substance: DILTIAZEM
  67. SOVALDI [Concomitant]
     Active Substance: SOFOSBUVIR
  68. OLYSIO [Concomitant]
     Active Substance: SIMEPREVIR
  69. TAMSULOSIN [Concomitant]
     Active Substance: TAMSULOSIN
  70. FARXIGA [Concomitant]
     Active Substance: DAPAGLIFLOZIN PROPANEDIOL
  71. GLYBURIDE [Concomitant]
     Active Substance: GLYBURIDE
  72. INVOKANA [Concomitant]
     Active Substance: CANAGLIFLOZIN
  73. NEXIUM I.V. [Concomitant]
     Active Substance: ESOMEPRAZOLE SODIUM
  74. ONDANSETRON [Concomitant]
     Active Substance: ONDANSETRON
  75. PROVENTIL [Concomitant]
     Active Substance: ALBUTEROL
  76. ACIPHEX [Concomitant]
     Active Substance: RABEPRAZOLE SODIUM
  77. FLUTICASONE PROPIONATE [Concomitant]
     Active Substance: FLUTICASONE PROPIONATE
  78. FUROSEMIDE [Concomitant]
     Active Substance: FUROSEMIDE
  79. POTASSIUM CHLORIDE [Concomitant]
     Active Substance: POTASSIUM CHLORIDE
  80. JANUVIA [Concomitant]
     Active Substance: SITAGLIPTIN PHOSPHATE
  81. SOLARAZE [Concomitant]
     Active Substance: DICLOFENAC SODIUM
  82. PROCHLORPERAZINE [Concomitant]
     Active Substance: PROCHLORPERAZINE
  83. MELOXICAM [Concomitant]
     Active Substance: MELOXICAM
  84. AVELOX [Concomitant]
     Active Substance: MOXIFLOXACIN HYDROCHLORIDE
  85. DRONABINOL [Concomitant]
     Active Substance: DRONABINOL
  86. CLARITHROMYCIN [Concomitant]
     Active Substance: CLARITHROMYCIN
  87. LANSOPRAZOLE [Concomitant]
     Active Substance: LANSOPRAZOLE
  88. MICRONASE [Concomitant]
     Active Substance: GLYBURIDE
  89. METHADONE [Concomitant]
     Active Substance: METHADONE HYDROCHLORIDE
  90. RANITIDINE [Concomitant]
     Active Substance: RANITIDINE
  91. LOPERAMIDE HYDROCHLORIDE [Concomitant]
     Active Substance: LOPERAMIDE HYDROCHLORIDE
  92. MUCINEX [Concomitant]
     Active Substance: GUAIFENESIN
  93. LANTUS [Concomitant]
     Active Substance: INSULIN GLARGINE
  94. AVANDIA [Concomitant]
     Active Substance: ROSIGLITAZONE MALEATE
  95. VALACYCLOVIR HYDROCHLORIDE [Concomitant]
     Active Substance: VALACYCLOVIR HYDROCHLORIDE
  96. AZELASTINE [Concomitant]
     Active Substance: AZELASTINE\AZELASTINE HYDROCHLORIDE
  97. CANAGLIFLOZIN [Concomitant]
     Active Substance: CANAGLIFLOZIN
  98. VITAMINS [Concomitant]
     Active Substance: VITAMINS
  99. DICLOFENAC SODIUM [Concomitant]
     Active Substance: DICLOFENAC\DICLOFENAC SODIUM

REACTIONS (8)
  - Bone demineralisation [Unknown]
  - Bone density decreased [Not Recovered/Not Resolved]
  - Anxiety [Not Recovered/Not Resolved]
  - Emotional distress [Not Recovered/Not Resolved]
  - Pain [Not Recovered/Not Resolved]
  - Anhedonia [Not Recovered/Not Resolved]
  - Bone pain [Not Recovered/Not Resolved]
  - Gait disturbance [Not Recovered/Not Resolved]

NARRATIVE: CASE EVENT DATE: 20140101
